FAERS Safety Report 5090132-X (Version None)
Quarter: 2006Q3

REPORT INFORMATION
  Report Type: 
  Country: None (occurrence: None)
  Receive Date: 20060828
  Receipt Date: 20060818
  Transmission Date: 20061208
  Serious: Yes (Other)
  Sender: FDA-Public Use
  Company Number: US-ROCHE-460282

PATIENT
  Age: 48 Year
  Sex: Male

DRUGS (2)
  1. PEGASYS [Suspect]
     Route: 065
     Dates: start: 20040215, end: 20050815
  2. RIBAVIRIN [Suspect]
     Dosage: DOSAGE REGIMEN REPORTED AS DAILY.
     Route: 065
     Dates: start: 20040215, end: 20050815

REACTIONS (3)
  - HEPATIC CIRRHOSIS [None]
  - NARCOLEPSY [None]
  - THERAPY NON-RESPONDER [None]
